FAERS Safety Report 5106071-1 (Version None)
Quarter: 2006Q3

REPORT INFORMATION
  Report Type: 
  Country: None (occurrence: None)
  Receive Date: 20060912
  Receipt Date: 20060831
  Transmission Date: 20061208
  Serious: Yes (Hospitalization, Other)
  Sender: FDA-Public Use
  Company Number: 2006106377

PATIENT
  Sex: Female

DRUGS (16)
  1. ZYVOX [Suspect]
     Indication: ANAEMIA
     Dosage: 1200 MG (600 MG, 2 IN 1 D),
     Dates: start: 20050626, end: 20051208
  2. ZYVOX [Suspect]
     Indication: ENTEROCOCCAL INFECTION
     Dosage: 1200 MG (600 MG, 2 IN 1 D),
     Dates: start: 20050626, end: 20051208
  3. ZYVOX [Suspect]
     Indication: SEPSIS
     Dosage: 1200 MG (600 MG, 2 IN 1 D),
     Dates: start: 20050626, end: 20051208
  4. MAGNESIUM CITRATE (MAGNESIUM CITRATE) [Concomitant]
  5. COLACE (DOCUSATE SODIUM) [Concomitant]
  6. FERROUS SULPHATE (FERROUS SULFATE) [Concomitant]
  7. LASIX [Concomitant]
  8. DRUG (DRUG) [Concomitant]
  9. INSULIN (INSULIN) [Concomitant]
  10. POTASSIUM (POTASSIUM) [Concomitant]
  11. REGLAN [Concomitant]
  12. MECLIZINE [Concomitant]
  13. COUMADIN [Concomitant]
  14. VICODIN [Concomitant]
  15. GLIPIZIDE [Concomitant]
  16. DIFLUCAN [Concomitant]

REACTIONS (1)
  - DRUG RESISTANCE [None]
